FAERS Safety Report 8627783 (Version 3)
Quarter: 2017Q1

REPORT INFORMATION
  Report Type: Report from Study
  Country: BE (occurrence: BE)
  Receive Date: 20120621
  Receipt Date: 20170113
  Transmission Date: 20170429
  Serious: Yes (Hospitalization, Other)
  Sender: FDA-Public Use
  Company Number: BE-AMGEN-BELCT2012036543

PATIENT
  Age: 40 Year
  Sex: Female
  Weight: 86 kg

DRUGS (31)
  1. TAXOTERE [Concomitant]
     Active Substance: DOCETAXEL
     Dosage: 100 MG/M2, Q3WK
     Dates: start: 20110413, end: 20110525
  2. EMEND [Concomitant]
     Active Substance: APREPITANT
     Dosage: UNK UNK, UNK
     Route: 048
     Dates: start: 20110209, end: 20110305
  3. NEULASTA [Concomitant]
     Active Substance: PEGFILGRASTIM
     Dosage: UNK
     Route: 058
     Dates: start: 20110303, end: 20110525
  4. ZANTAC [Concomitant]
     Active Substance: RANITIDINE HYDROCHLORIDE
     Dosage: 50 MG, UNK
     Route: 042
     Dates: start: 20110215, end: 20110406
  5. STILNOCT [Concomitant]
     Active Substance: ZOLPIDEM TARTRATE
     Dosage: 10 MG, UNK
     Route: 048
     Dates: start: 20110209, end: 20110926
  6. TEMESTA [Concomitant]
     Active Substance: LORAZEPAM
     Dosage: 2.5 MG, UNK
     Route: 048
     Dates: start: 20110302
  7. IBUPROFEN. [Concomitant]
     Active Substance: IBUPROFEN
     Dosage: 400 MG, UNK
     Route: 048
     Dates: start: 20110127, end: 20110208
  8. CACIT VITAMINE D3 [Concomitant]
     Active Substance: CALCIUM CARBONATE\CHOLECALCIFEROL
     Dosage: 1.25 G, UNK
     Route: 048
     Dates: start: 20110216
  9. CONTRAMAL [Concomitant]
     Active Substance: TRAMADOL HYDROCHLORIDE
     Dosage: 100 MG, UNK
     Route: 042
     Dates: start: 20110128, end: 20110225
  10. BIOTENE NOS [Concomitant]
     Active Substance: CETYLPYRIDINIUM CHLORIDE OR SODIUM FLUORIDE OR SODIUM MONOFLUOROPHOSPHATE OR GLUCOSE OXIDASE\LACTOFERRIN\LACTOPEROXIDASE BOVINE\LYSOZYME
     Dosage: UNK
     Route: 050
     Dates: start: 20110413, end: 20110419
  11. SEROXAT [Concomitant]
     Active Substance: PAROXETINE HYDROCHLORIDE
     Dosage: 40 MG, UNK
     Route: 048
     Dates: start: 2006, end: 20110705
  12. RIOPAN [Concomitant]
     Active Substance: MAGALDRATE
     Dosage: 800 MG, UNK
     Route: 048
     Dates: start: 20110406, end: 20110412
  13. CARBOBEL [Concomitant]
     Dosage: 70 MG, UNK
     Route: 048
     Dates: start: 20110413, end: 20110504
  14. STOMATOLOGICALS, MOUTH PREPARATIONS [Concomitant]
     Dosage: UNK UNK, UNK
     Route: 050
     Dates: start: 20110413, end: 20110421
  15. DAFALGAN [Concomitant]
     Active Substance: ACETAMINOPHEN
     Dosage: 1 G, UNK
     Route: 048
     Dates: start: 20110209, end: 20110404
  16. DENOSUMAB [Suspect]
     Active Substance: DENOSUMAB
     Indication: BREAST CANCER
     Dosage: 120 MG, UNK
     Route: 058
     Dates: start: 20110215, end: 20110406
  17. MEDROL [Concomitant]
     Active Substance: METHYLPREDNISOLONE
     Dosage: UNK
     Route: 048
     Dates: start: 20110412, end: 20110416
  18. ATACAND [Concomitant]
     Active Substance: CANDESARTAN CILEXETIL
     Dosage: 8 MG, UNK
     Route: 048
     Dates: start: 2010, end: 20110705
  19. LITICAN [Concomitant]
     Active Substance: ALIZAPRIDE HYDROCHLORIDE
     Dosage: UNK
     Route: 042
     Dates: start: 20110209
  20. EMCONCOR [Concomitant]
     Active Substance: BISOPROLOL FUMARATE
     Dosage: 5 MG, UNK
     Route: 048
     Dates: start: 2005, end: 20110705
  21. DIFLUCAN [Concomitant]
     Active Substance: FLUCONAZOLE
     Dosage: 50 MG, UNK
     Route: 048
     Dates: start: 20110419, end: 20110423
  22. IMODIUM [Concomitant]
     Active Substance: LOPERAMIDE HYDROCHLORIDE
     Dosage: UNK
     Route: 060
     Dates: start: 20110419, end: 20110420
  23. FRAXODI [Concomitant]
     Active Substance: NADROPARIN CALCIUM
     Dosage: UNK
     Route: 058
     Dates: start: 20110128, end: 20110206
  24. NEUPOGEN [Concomitant]
     Active Substance: FILGRASTIM
     Dosage: UNK
     Route: 058
     Dates: start: 20110225, end: 20110228
  25. LANSOPRAZOLE. [Concomitant]
     Active Substance: LANSOPRAZOLE
     Dosage: 30 MG, UNK
     Route: 048
     Dates: start: 2007, end: 20110407
  26. TAVANIC [Concomitant]
     Active Substance: LEVOFLOXACIN
     Dosage: UNK MG, UNK
     Route: 048
     Dates: start: 20110327, end: 20110429
  27. MOTILIUM [Concomitant]
     Active Substance: DOMPERIDONE
     Dosage: 10 MG, UNK
     Route: 048
     Dates: start: 20110209, end: 20110213
  28. PERFUSALGAN [Concomitant]
     Active Substance: ACETAMINOPHEN
     Dosage: 1 G, UNK
     Route: 042
     Dates: start: 20110128, end: 20110419
  29. ONDANSETRON [Concomitant]
     Active Substance: ONDANSETRON
     Dosage: 8 MG, UNK
     Route: 042
     Dates: start: 20110209, end: 20110323
  30. SOLU-MEDROL [Concomitant]
     Active Substance: METHYLPREDNISOLONE SODIUM SUCCINATE
     Dosage: 80 MG, UNK
     Route: 042
     Dates: start: 20110209, end: 20110419
  31. VALERIAN EXTRACT [Concomitant]
     Active Substance: VALERIAN EXTRACT
     Dosage: UNK UNK, UNK
     Route: 048
     Dates: start: 20110209, end: 20110210

REACTIONS (1)
  - Pain in jaw [Recovered/Resolved]

NARRATIVE: CASE EVENT DATE: 20110426
